FAERS Safety Report 16529464 (Version 1)
Quarter: 2019Q3

REPORT INFORMATION
  Report Type: Report from Study
  Country: CN (occurrence: CN)
  Receive Date: 20190704
  Receipt Date: 20190704
  Transmission Date: 20191004
  Serious: Yes (Hospitalization)
  Sender: FDA-Public Use
  Company Number: CN-ASTRAZENECA-2019SE94777

PATIENT
  Sex: Female

DRUGS (2)
  1. NOVOMIX [Concomitant]
     Active Substance: INSULIN ASPART
     Dosage: 30(16 IN THE MORNING, 14 IN THE EVENING).
  2. BYDUREON [Suspect]
     Active Substance: EXENATIDE
     Indication: DIABETES MELLITUS
     Route: 058
     Dates: start: 20190301

REACTIONS (1)
  - Diabetes mellitus inadequate control [Unknown]
